FAERS Safety Report 8346950-5 (Version None)
Quarter: 2012Q2

REPORT INFORMATION
  Report Type: 
  Country: None (occurrence: None)
  Receive Date: 20120507
  Receipt Date: 20120507
  Transmission Date: 20120825
  Serious: Yes (Life-Threatening, Hospitalization)
  Sender: FDA-Public Use
  Company Number: None

PATIENT
  Age: 47 Year
  Sex: Male
  Weight: 108.6 kg

DRUGS (1)
  1. IBUPROFEN [Suspect]
     Indication: PAIN

REACTIONS (1)
  - ANAPHYLACTIC REACTION [None]
